FAERS Safety Report 6986436-3 (Version None)
Quarter: 2010Q3

REPORT INFORMATION
  Report Type: 
  Country: None (occurrence: None)
  Receive Date: 20100915
  Receipt Date: 20090819
  Transmission Date: 20110219
  Serious: No
  Sender: FDA-Public Use
  Company Number: US-WYE-H10124609

PATIENT
  Sex: Female
  Weight: 62.65 kg

DRUGS (5)
  1. PRISTIQ [Suspect]
     Indication: DEPRESSION
     Route: 048
     Dates: start: 20090501
  2. AMITRIPTYLINE HCL [Suspect]
     Dosage: UNKNOWN
  3. LISINOPRIL [Suspect]
     Route: 048
  4. PERCOCET [Concomitant]
  5. LORAZEPAM [Concomitant]

REACTIONS (4)
  - FLUSHING [None]
  - HYPERHIDROSIS [None]
  - RASH [None]
  - WHITE BLOOD CELLS URINE POSITIVE [None]
